FAERS Safety Report 17222428 (Version 2)
Quarter: 2020Q2

REPORT INFORMATION
  Report Type: Spontaneous
  Country: US (occurrence: US)
  Receive Date: 20200101
  Receipt Date: 20200604
  Transmission Date: 20200713
  Serious: Yes (Other)
  Sender: FDA-Public Use
  Company Number: US-ASTRAZENECA-2019SF91703

PATIENT
  Age: 24856 Day
  Sex: Female

DRUGS (59)
  1. OMEPRAZOLE. [Suspect]
     Active Substance: OMEPRAZOLE
     Indication: ABDOMINAL DISCOMFORT
     Route: 065
     Dates: start: 2012, end: 2017
  2. ROSUVASTATIN. [Concomitant]
     Active Substance: ROSUVASTATIN
     Indication: BLOOD CHOLESTEROL
     Dates: start: 2019
  3. AZITHROMYCIN ANHYDROUS. [Concomitant]
     Active Substance: AZITHROMYCIN ANHYDROUS
  4. ZOCOR [Concomitant]
     Active Substance: SIMVASTATIN
  5. BYDUREON [Concomitant]
     Active Substance: EXENATIDE
  6. PANTOPRAZOLE SODIUM. [Concomitant]
     Active Substance: PANTOPRAZOLE SODIUM
  7. ULTRAM [Concomitant]
     Active Substance: TRAMADOL HYDROCHLORIDE
  8. CLINDAMYCIN. [Concomitant]
     Active Substance: CLINDAMYCIN
  9. AMOXICILLIN. [Concomitant]
     Active Substance: AMOXICILLIN
  10. NOREL [Concomitant]
  11. METOPROLOL TARTRATE. [Concomitant]
     Active Substance: METOPROLOL TARTRATE
  12. TRIAMCINOLONE [Concomitant]
     Active Substance: TRIAMCINOLONE
  13. ZOSTAVAX [Concomitant]
     Active Substance: VARICELLA-ZOSTER VIRUS STRAIN OKA/MERCK LIVE ANTIGEN
  14. OMEPRAZOLE. [Suspect]
     Active Substance: OMEPRAZOLE
     Indication: ABDOMINAL DISCOMFORT
     Dosage: 20.0MG UNKNOWN
     Route: 048
     Dates: start: 20120831
  15. FAMOTIDINE. [Suspect]
     Active Substance: FAMOTIDINE
     Indication: ABDOMINAL DISCOMFORT
     Route: 065
     Dates: start: 2016
  16. ASPIRIN. [Concomitant]
     Active Substance: ASPIRIN
     Indication: BLOOD VISCOSITY ABNORMAL
     Dates: start: 1992
  17. ALTACE [Concomitant]
     Active Substance: RAMIPRIL
  18. BETIMOL [Concomitant]
     Active Substance: TIMOLOL
  19. LACTAID [Concomitant]
     Active Substance: LACTASE
  20. PANTOPRAZOLE [Suspect]
     Active Substance: PANTOPRAZOLE
     Indication: ABDOMINAL DISCOMFORT
     Dosage: 20.0MG UNKNOWN
     Route: 065
     Dates: start: 2018
  21. CLOPIDOGREL [Concomitant]
     Active Substance: CLOPIDOGREL BISULFATE
     Indication: BLOOD VISCOSITY ABNORMAL
     Dates: start: 2017
  22. LOSARTAN. [Concomitant]
     Active Substance: LOSARTAN
     Indication: BLOOD PRESSURE MEASUREMENT
     Dates: start: 2015
  23. HUMULIN NOS [Concomitant]
     Active Substance: INSULIN HUMAN
  24. NYSTATIN. [Concomitant]
     Active Substance: NYSTATIN
  25. POTASSIUM CHLORIDE. [Concomitant]
     Active Substance: POTASSIUM CHLORIDE
  26. NEXIUM [Suspect]
     Active Substance: ESOMEPRAZOLE MAGNESIUM
     Indication: ABDOMINAL DISCOMFORT
     Route: 048
     Dates: start: 2000, end: 2012
  27. HYDROCODONE-ACETAMINOPHEN [Concomitant]
     Active Substance: ACETAMINOPHEN\HYDROCODONE
  28. TRILYTE [Concomitant]
     Active Substance: POLYETHYLENE GLYCOL 3350\POTASSIUM CHLORIDE\SODIUM BICARBONATE\SODIUM CHLORIDE
  29. VITAMIN E [Concomitant]
     Active Substance: .ALPHA.-TOCOPHEROL
  30. TUMS [Concomitant]
     Active Substance: CALCIUM CARBONATE
     Dates: start: 2000
  31. SINGULAIR [Concomitant]
     Active Substance: MONTELUKAST SODIUM
  32. GLUCOTROL [Concomitant]
     Active Substance: GLIPIZIDE
  33. DIAZEPAM. [Concomitant]
     Active Substance: DIAZEPAM
  34. TRIAMCINOL [Concomitant]
  35. DIPHENYL [Concomitant]
  36. RHOPRESSA [Concomitant]
     Active Substance: NETARSUDIL MESYLATE
  37. QUINAPRIL. [Concomitant]
     Active Substance: QUINAPRIL
  38. FLONASE [Concomitant]
     Active Substance: FLUTICASONE PROPIONATE
  39. NEXIUM [Suspect]
     Active Substance: ESOMEPRAZOLE MAGNESIUM
     Indication: ABDOMINAL DISCOMFORT
     Route: 048
     Dates: start: 2002, end: 2016
  40. PROAIR HFA [Concomitant]
     Active Substance: ALBUTEROL SULFATE
     Indication: DYSPNOEA
  41. METOPROLOL. [Concomitant]
     Active Substance: METOPROLOL
     Indication: BLOOD PRESSURE MEASUREMENT
     Dates: start: 2018
  42. LUMIGAN [Concomitant]
     Active Substance: BIMATOPROST
  43. EDAHIST [Concomitant]
  44. SITREX [Concomitant]
     Active Substance: GUAIFENESIN\PHENYLEPHRINE HYDROCHLORIDE
  45. SANCTURA [Concomitant]
     Active Substance: TROSPIUM CHLORIDE
  46. VITAMIN B12 [Concomitant]
     Active Substance: CYANOCOBALAMIN
  47. PENICILLIN [Concomitant]
     Active Substance: PENICILLIN
  48. TIZANIDINE. [Concomitant]
     Active Substance: TIZANIDINE
     Indication: LIGAMENT SPRAIN
     Dates: start: 2017
  49. INSULIN [Concomitant]
     Active Substance: INSULIN NOS
     Indication: BLOOD GLUCOSE ABNORMAL
  50. RANITIDINE. [Concomitant]
     Active Substance: RANITIDINE
  51. ALLEGRA [Concomitant]
     Active Substance: FEXOFENADINE HYDROCHLORIDE
  52. ENABLEX [Concomitant]
     Active Substance: DARIFENACIN HYDROBROMIDE
  53. CARAFATE [Concomitant]
     Active Substance: SUCRALFATE
  54. ZETIA [Concomitant]
     Active Substance: EZETIMIBE
  55. LYRICA [Concomitant]
     Active Substance: PREGABALIN
  56. NASONEX [Concomitant]
     Active Substance: MOMETASONE FUROATE
  57. FISH OIL [Concomitant]
     Active Substance: FISH OIL
  58. PLAVIX [Concomitant]
     Active Substance: CLOPIDOGREL BISULFATE
  59. CETIRIZINE [Concomitant]
     Active Substance: CETIRIZINE HYDROCHLORIDE

REACTIONS (3)
  - Chronic kidney disease [Not Recovered/Not Resolved]
  - Nephropathy [Unknown]
  - Acute kidney injury [Not Recovered/Not Resolved]

NARRATIVE: CASE EVENT DATE: 20161018
